FAERS Safety Report 20601954 (Version 1)
Quarter: 2022Q1

REPORT INFORMATION
  Report Type: Spontaneous
  Country: US (occurrence: US)
  Receive Date: 20220316
  Receipt Date: 20220316
  Transmission Date: 20220424
  Serious: No
  Sender: FDA-Public Use
  Company Number: US-SK LIFE SCIENCE, INC-SKPVG-2022-000024

PATIENT

DRUGS (15)
  1. XCOPRI [Suspect]
     Active Substance: CENOBAMATE
     Indication: Seizure
     Dosage: UNK
     Route: 048
     Dates: start: 20210606
  2. XCOPRI [Suspect]
     Active Substance: CENOBAMATE
     Dosage: 50 MILLIGRAM, CUT ONE IN HALF TO GET 25MG
     Route: 048
  3. XCOPRI [Suspect]
     Active Substance: CENOBAMATE
     Dosage: 125 MILLIGRAM
     Route: 048
  4. XCOPRI [Suspect]
     Active Substance: CENOBAMATE
     Dosage: 150 MILLIGRAM
     Route: 048
  5. XCOPRI [Suspect]
     Active Substance: CENOBAMATE
     Dosage: 100 MILLIGRAM, QD, EVERY NIGHT
     Route: 048
  6. XCOPRI [Suspect]
     Active Substance: CENOBAMATE
     Dosage: 12.5 MILLIGRAM, QD, EVERY NIGHT
     Route: 048
  7. ONFI [Suspect]
     Active Substance: CLOBAZAM
     Indication: Product used for unknown indication
     Dosage: 40 MILLIGRAM
     Route: 065
     Dates: start: 202106
  8. ONFI [Suspect]
     Active Substance: CLOBAZAM
     Dosage: 30 MILLIGRAM
     Route: 065
  9. ONFI [Suspect]
     Active Substance: CLOBAZAM
     Dosage: 5 MILLIGRAM
     Route: 065
  10. CHLORPHENIRAMINE MALEATE [Concomitant]
     Active Substance: CHLORPHENIRAMINE MALEATE
     Indication: Product used for unknown indication
     Dosage: 3200 MILLIGRAM
     Route: 065
  11. LAMICTAL [Concomitant]
     Active Substance: LAMOTRIGINE
     Indication: Product used for unknown indication
     Dosage: 350 MILLIGRAM
     Route: 065
  12. LAMICTAL [Concomitant]
     Active Substance: LAMOTRIGINE
     Dosage: 250 MILLIGRAM
     Route: 065
  13. LAMICTAL [Concomitant]
     Active Substance: LAMOTRIGINE
     Dosage: 300 MILLIGRAM
     Route: 065
  14. LORAZEPAM [Concomitant]
     Active Substance: LORAZEPAM
     Indication: Seizure
     Dosage: 2 MILLIGRAM, PRN
     Route: 065
  15. Nosialam [Concomitant]
     Indication: Seizure
     Route: 065

REACTIONS (6)
  - Seizure [Not Recovered/Not Resolved]
  - Wrong technique in product usage process [Recovered/Resolved]
  - Dizziness [Unknown]
  - Decreased appetite [Recovered/Resolved]
  - Asthenia [Recovered/Resolved]
  - Somnolence [Unknown]
